FAERS Safety Report 8419370 (Version 8)
Quarter: 2012Q4

REPORT INFORMATION
  Report Type: 
  Country: CA (occurrence: CA)
  Receive Date: 20120221
  Receipt Date: 20121017
  Transmission Date: 20130627
  Serious: Yes (Other)
  Sender: FDA-Public Use
  Company Number: PHHY2012CA009693

PATIENT
  Age: 47 Year
  Sex: Female

DRUGS (13)
  1. GILENYA [Suspect]
     Indication: RELAPSING-REMITTING MULTIPLE SCLEROSIS
     Dosage: 0.5 mg, QD
     Route: 048
     Dates: start: 20120120
  2. NEURONTIN [Concomitant]
     Dosage: 600 mg, TID
  3. ZANAFLEX [Concomitant]
     Dosage: 4 mg, BID
  4. DITROPAN [Concomitant]
     Dosage: 5 mg, BID
  5. MOTILIUM [Concomitant]
     Dosage: 10 mg, TID
  6. NEXIUM [Concomitant]
     Dosage: 40 mg, BID
  7. SENOKOT [Concomitant]
     Dosage: 8.6 mg, BID
  8. COLACE [Concomitant]
     Dosage: 100 mg, UNK
  9. PROZAC [Concomitant]
     Dosage: 40 mg,
  10. PROZAC [Concomitant]
     Dosage: 10 mg, UNK
  11. RIVOTRIL [Concomitant]
     Dosage: 1 mg, PRN
  12. NITRO [Concomitant]
     Dosage: 1 mg,
  13. D-TABS [Concomitant]
     Dosage: 10000 IU, UNK

REACTIONS (8)
  - Nausea [Recovering/Resolving]
  - Myalgia [Recovering/Resolving]
  - Bradycardia [Recovering/Resolving]
  - Sinus headache [Recovering/Resolving]
  - Diarrhoea [Recovering/Resolving]
  - Cough [Recovering/Resolving]
  - Asthenia [Recovering/Resolving]
  - Dizziness [Unknown]
